FAERS Safety Report 23991861 (Version 3)
Quarter: 2024Q3

REPORT INFORMATION
  Report Type: Spontaneous
  Country: US (occurrence: US)
  Receive Date: 20240619
  Receipt Date: 20240920
  Transmission Date: 20241017
  Serious: Yes (Other)
  Sender: JOHNSON AND JOHNSON
  Company Number: US-JNJFOC-20240642900

PATIENT
  Age: 8 Decade
  Sex: Female
  Weight: 55.2 kg

DRUGS (8)
  1. DARATUMUMAB [Suspect]
     Active Substance: DARATUMUMAB
     Indication: Plasma cell myeloma
     Dosage: 2 CYCLES
     Route: 065
     Dates: start: 202304
  2. DARATUMUMAB [Suspect]
     Active Substance: DARATUMUMAB
     Dosage: 2 CYCLES
     Route: 065
     Dates: start: 20231206
  3. POMALIDOMIDE [Suspect]
     Active Substance: POMALIDOMIDE
     Indication: Plasma cell myeloma
     Dosage: 2 CYCLES
     Route: 065
     Dates: start: 202304
  4. DEXAMETHASONE [Suspect]
     Active Substance: DEXAMETHASONE
     Indication: Plasma cell myeloma
     Dosage: 2 CYCLES
     Route: 065
     Dates: start: 202304
  5. DEXAMETHASONE [Suspect]
     Active Substance: DEXAMETHASONE
     Route: 065
     Dates: start: 20230824
  6. SELINEXOR [Suspect]
     Active Substance: SELINEXOR
     Indication: Plasma cell myeloma
     Dates: start: 20230824
  7. VELCADE [Suspect]
     Active Substance: BORTEZOMIB
     Indication: Plasma cell myeloma
     Dates: start: 20230824
  8. KYPROLIS [Suspect]
     Active Substance: CARFILZOMIB
     Route: 065
     Dates: start: 20231206

REACTIONS (2)
  - Plasma cell myeloma [Unknown]
  - Plasmacytoma [Unknown]
